FAERS Safety Report 6333126-6 (Version None)
Quarter: 2009Q3

REPORT INFORMATION
  Report Type: 
  Country: None (occurrence: None)
  Receive Date: 20090828
  Receipt Date: 20090824
  Transmission Date: 20100115
  Serious: Yes (Other)
  Sender: FDA-Public Use
  Company Number: US-JNJFOC-20090807275

PATIENT
  Sex: Female
  Weight: 89 kg

DRUGS (3)
  1. REMICADE [Suspect]
     Dosage: 2ND INFUSION ON UNSPECIFIED DATE AT WEEK 2
     Route: 042
  2. REMICADE [Suspect]
     Indication: RHEUMATOID ARTHRITIS
     Dosage: 1ST INFUSION AT WEEK 0; DOSE 3 VIALS
     Route: 042
  3. TOPAMAX [Concomitant]
     Indication: MIGRAINE

REACTIONS (5)
  - DIARRHOEA [None]
  - FACIAL PALSY [None]
  - HEADACHE [None]
  - HYPOAESTHESIA FACIAL [None]
  - INFUSION RELATED REACTION [None]
